FAERS Safety Report 5493393-8 (Version None)
Quarter: 2007Q4

REPORT INFORMATION
  Report Type: 
  Country: None (occurrence: None)
  Receive Date: 20071022
  Receipt Date: 20071022
  Transmission Date: 20080405
  Serious: No
  Sender: FDA-Public Use
  Company Number: None

PATIENT
  Age: 69 Year
  Sex: Female

DRUGS (10)
  1. DOXYCYCLINE [Suspect]
     Dates: start: 20061208, end: 20061214
  2. GLYBURIDE [Suspect]
     Dates: start: 20060912, end: 20061214
  3. METHOTREXATE [Concomitant]
  4. ROSUVASTATIN [Concomitant]
  5. FELODIPINE [Concomitant]
  6. POTASSIUM CHLORIDE [Concomitant]
  7. NABUMETONE [Concomitant]
  8. FOLIC ACID [Concomitant]
  9. LEVAQUIN [Concomitant]
  10. ACETAMINOPHEN [Concomitant]

REACTIONS (3)
  - HEPATITIS B [None]
  - LIVER INJURY [None]
  - UPPER RESPIRATORY TRACT INFECTION [None]
